FAERS Safety Report 13496004 (Version 1)
Quarter: 2017Q2

REPORT INFORMATION
  Report Type: Report from Study
  Country: CA (occurrence: CA)
  Receive Date: 20170428
  Receipt Date: 20170428
  Transmission Date: 20170830
  Serious: Yes (Death)
  Sender: FDA-Public Use
  Company Number: CA-ASTRAZENECA-2017SE41975

PATIENT

DRUGS (2)
  1. BUDESONIDE. [Suspect]
     Active Substance: BUDESONIDE
     Indication: ASTHMA
     Route: 055
  2. PREDNISONE. [Suspect]
     Active Substance: PREDNISONE
     Indication: ASTHMA
     Dosage: OCCASIONAL USE X 5 DAYS
     Route: 048

REACTIONS (6)
  - Adrenal suppression [Fatal]
  - Shock [Fatal]
  - Cushing^s syndrome [Fatal]
  - Cardiac failure [Fatal]
  - Overdose [Fatal]
  - Adrenocortical insufficiency acute [Fatal]
